FAERS Safety Report 4931863-9 (Version None)
Quarter: 2006Q1

REPORT INFORMATION
  Report Type: 
  Country: None (occurrence: None)
  Receive Date: 20060303
  Receipt Date: 20051006
  Transmission Date: 20060701
  Serious: Yes (Hospitalization, Other)
  Sender: FDA-Public Use
  Company Number: US-MERCK-0510USA05827

PATIENT
  Age: 65 Year
  Sex: Male
  Weight: 91 kg

DRUGS (4)
  1. VIOXX [Suspect]
     Indication: ARTHRITIS
     Route: 048
     Dates: start: 20000901, end: 20031101
  2. VIOXX [Suspect]
     Route: 048
  3. TYLENOL (CAPLET) [Concomitant]
     Route: 065
  4. ALEVE [Concomitant]
     Route: 065

REACTIONS (4)
  - CARDIAC DISORDER [None]
  - HERPES ZOSTER [None]
  - MYOCARDIAL INFARCTION [None]
  - RASH [None]
